FAERS Safety Report 11201484 (Version 7)
Quarter: 2015Q4

REPORT INFORMATION
  Report Type: Spontaneous
  Country: DE (occurrence: DE)
  Receive Date: 20150619
  Receipt Date: 20151203
  Transmission Date: 20160304
  Serious: Yes (Other)
  Sender: FDA-Public Use
  Company Number: DE-BRISTOL-MYERS SQUIBB COMPANY-BMS-2015-037350

PATIENT
  Age: 50 Year
  Sex: Female
  Weight: 58 kg

DRUGS (2)
  1. ABILIFY [Suspect]
     Active Substance: ARIPIPRAZOLE
     Indication: PRODUCT USED FOR UNKNOWN INDICATION
     Dosage: 15 MG/ML, QD
     Route: 048
     Dates: start: 20150424
  2. ABILIFY [Suspect]
     Active Substance: ARIPIPRAZOLE
     Dosage: 20 ML, QD
     Route: 048
     Dates: start: 20150510

REACTIONS (16)
  - Vision blurred [Unknown]
  - Nasal dryness [Unknown]
  - Pulmonary pain [Unknown]
  - Compulsive sexual behaviour [Unknown]
  - Hypertension [Unknown]
  - Weight increased [Unknown]
  - Acne [Not Recovered/Not Resolved]
  - Palpitations [Unknown]
  - Constipation [Unknown]
  - Tremor [Not Recovered/Not Resolved]
  - Breast pain [Unknown]
  - Peripheral swelling [Unknown]
  - Epistaxis [Unknown]
  - Arthralgia [Unknown]
  - Insomnia [Unknown]
  - Musculoskeletal stiffness [Unknown]

NARRATIVE: CASE EVENT DATE: 20150424
